FAERS Safety Report 19193554 (Version 3)
Quarter: 2025Q3

REPORT INFORMATION
  Report Type: Spontaneous
  Country: EU (occurrence: EU)
  Receive Date: 20210429
  Receipt Date: 20250710
  Transmission Date: 20251021
  Serious: Yes (Hospitalization, Other)
  Sender: AUROBINDO
  Company Number: EU-MPA-2021-024248

PATIENT
  Age: 28 Year
  Sex: Female

DRUGS (2)
  1. SERTRALINE HYDROCHLORIDE [Suspect]
     Active Substance: SERTRALINE HYDROCHLORIDE
     Indication: Product used for unknown indication
     Route: 065
     Dates: start: 20210323, end: 20210323
  2. ACETAMINOPHEN [Suspect]
     Active Substance: ACETAMINOPHEN
     Indication: Product used for unknown indication
     Route: 065
     Dates: start: 20210323, end: 20210323

REACTIONS (9)
  - Suicidal ideation [Unknown]
  - Poisoning deliberate [Unknown]
  - Suicide attempt [Unknown]
  - Dizziness [Recovering/Resolving]
  - Diplopia [Recovering/Resolving]
  - Nausea [Recovering/Resolving]
  - Toxicity to various agents [Unknown]
  - Mydriasis [Recovering/Resolving]
  - Intentional overdose [Unknown]

NARRATIVE: CASE EVENT DATE: 20210323
